FAERS Safety Report 17763818 (Version 1)
Quarter: 2020Q2

REPORT INFORMATION
  Report Type: Spontaneous
  Country: US (occurrence: US)
  Receive Date: 20200510
  Receipt Date: 20200510
  Transmission Date: 20200714
  Serious: Yes (Other)
  Sender: FDA-Public Use
  Company Number: US-TEVA-2019-US-1161827

PATIENT
  Sex: Female

DRUGS (10)
  1. COPAXONE [Suspect]
     Active Substance: GLATIRAMER ACETATE
     Indication: MULTIPLE SCLEROSIS
     Dosage: 20 MILLIGRAM/MILLILITERS DAILY; FERQUENCY:EVERY DAY
     Route: 058
     Dates: start: 20151222
  2. ORTHO TRI [Concomitant]
  3. MIRALAX POW [Concomitant]
     Dosage: FORM STRENGTH: 3350 NF
     Route: 065
  4. TRI-SPRINTEC TAB [Concomitant]
     Route: 065
  5. THEO-24 [Concomitant]
     Active Substance: THEOPHYLLINE ANHYDROUS
     Dosage: CR
     Route: 065
  6. AMLODIPINE [Concomitant]
     Active Substance: AMLODIPINE BESYLATE
     Route: 065
  7. BACLOFEN. [Concomitant]
     Active Substance: BACLOFEN
     Route: 065
  8. COPAXONE [Suspect]
     Active Substance: GLATIRAMER ACETATE
     Dosage: 20 MILLIGRAM DAILY;
     Route: 058
     Dates: start: 20180907
  9. B1 NATURAL [Concomitant]
     Route: 065
  10. METHYLPRED [Concomitant]
     Active Substance: METHYLPREDNISOLONE

REACTIONS (4)
  - Peroneal nerve palsy [Not Recovered/Not Resolved]
  - Spinal disorder [Not Recovered/Not Resolved]
  - Gait disturbance [Not Recovered/Not Resolved]
  - Balance disorder [Not Recovered/Not Resolved]

NARRATIVE: CASE EVENT DATE: 2018
